FAERS Safety Report 7808411-9 (Version None)
Quarter: 2011Q4

REPORT INFORMATION
  Report Type: 
  Country: None (occurrence: None)
  Receive Date: 20111007
  Receipt Date: 20111004
  Transmission Date: 20120403
  Serious: Yes (Hospitalization)
  Sender: FDA-Public Use
  Company Number: CO-001980

PATIENT
  Age: 10 Year
  Sex: Female

DRUGS (2)
  1. NAGLAZYME [Suspect]
     Indication: MUCOPOLYSACCHARIDOSIS VI
     Dosage: (20 MG 1X/WEEK INTRAVENOUS DRIP)
     Route: 041
     Dates: start: 20091111
  2. ACETAMINOPHEN [Concomitant]

REACTIONS (2)
  - BRONCHOPNEUMONIA [None]
  - ASTHMA [None]
